FAERS Safety Report 11032628 (Version 2)
Quarter: 2015Q2

REPORT INFORMATION
  Report Type: Spontaneous
  Country: US (occurrence: US)
  Receive Date: 20150415
  Receipt Date: 20150612
  Transmission Date: 20150821
  Serious: Yes (Hospitalization, Other)
  Sender: FDA-Public Use
  Company Number: US-009507513-1112USA01476

PATIENT
  Sex: Female
  Weight: 57.14 kg

DRUGS (3)
  1. ALENDRONATE SODIUM. [Suspect]
     Active Substance: ALENDRONATE SODIUM
     Indication: BONE DENSITY DECREASED
     Dosage: 70 MG, UNK
     Route: 048
     Dates: start: 20080318, end: 20091209
  2. ALENDRONATE SODIUM. [Suspect]
     Active Substance: ALENDRONATE SODIUM
     Indication: BONE DENSITY DECREASED
     Dosage: 70 MG, UNK
     Route: 048
     Dates: start: 2008, end: 2010
  3. FOSAMAX [Suspect]
     Active Substance: ALENDRONATE SODIUM
     Indication: BONE DENSITY DECREASED
     Dosage: 70 MG, QW
     Route: 048
     Dates: start: 2000, end: 20080129

REACTIONS (23)
  - Haemoglobin decreased [Unknown]
  - Femur fracture [Recovering/Resolving]
  - Anaemia [Recovered/Resolved]
  - Fracture delayed union [Recovering/Resolving]
  - Thrombocytopenia [Unknown]
  - Osteopenia [Unknown]
  - Haematocrit decreased [Unknown]
  - Varicose vein [Unknown]
  - Anxiety [Recovering/Resolving]
  - Urinary tract infection enterococcal [Unknown]
  - Arrhythmia [Unknown]
  - Nausea [Recovering/Resolving]
  - Osteoporosis [Unknown]
  - Limb injury [Unknown]
  - Diabetes mellitus inadequate control [Unknown]
  - Type 2 diabetes mellitus [Unknown]
  - Inappropriate schedule of drug administration [Unknown]
  - Nausea [Unknown]
  - Removal of internal fixation [Unknown]
  - Fall [Unknown]
  - Intramedullary rod insertion [Recovering/Resolving]
  - Mass [Unknown]
  - Hypertension [Unknown]

NARRATIVE: CASE EVENT DATE: 20040114
